FAERS Safety Report 23976361 (Version 1)
Quarter: 2024Q2

REPORT INFORMATION
  Report Type: Spontaneous
  Country: GB (occurrence: GB)
  Receive Date: 20240614
  Receipt Date: 20240614
  Transmission Date: 20240715
  Serious: Yes (Other)
  Sender: FDA-Public Use
  Company Number: GB-B.Braun Medical Inc.-2158095

PATIENT
  Age: 49 Year
  Sex: Female

DRUGS (4)
  1. ACETAMINOPHEN [Suspect]
     Active Substance: ACETAMINOPHEN
  2. KESIMPTA [Suspect]
     Active Substance: OFATUMUMAB
  3. GABAPENTIN [Suspect]
     Active Substance: GABAPENTIN
  4. CODEINE [Suspect]
     Active Substance: CODEINE

REACTIONS (5)
  - Multiple sclerosis [Unknown]
  - Hypoaesthesia [Unknown]
  - Muscular weakness [Unknown]
  - Lhermitte^s sign [Unknown]
  - Paralysis [Unknown]
